FAERS Safety Report 7400620-6 (Version None)
Quarter: 2011Q2

REPORT INFORMATION
  Report Type: 
  Country: None (occurrence: None)
  Receive Date: 20110407
  Receipt Date: 20110404
  Transmission Date: 20111010
  Serious: No
  Sender: FDA-Public Use
  Company Number: US-PFIZER INC-2011074186

PATIENT
  Sex: Male

DRUGS (3)
  1. ADVIL COLD AND SINUS [Suspect]
     Indication: NASOPHARYNGITIS
     Dosage: 200 MG, UNK
     Route: 048
     Dates: start: 20110401
  2. ADVIL COLD AND SINUS [Suspect]
     Indication: PYREXIA
  3. ADVIL COLD AND SINUS [Suspect]
     Indication: HEADACHE

REACTIONS (2)
  - RASH [None]
  - CONTUSION [None]
